FAERS Safety Report 8301503-X (Version None)
Quarter: 2012Q2

REPORT INFORMATION
  Report Type: 
  Country: None (occurrence: None)
  Receive Date: 20120420
  Receipt Date: 20120416
  Transmission Date: 20120825
  Serious: Yes (Hospitalization)
  Sender: FDA-Public Use
  Company Number: PHHY2012FR032752

PATIENT
  Sex: Male

DRUGS (12)
  1. ATORVASTATIN [Concomitant]
  2. DIPROSONE [Concomitant]
  3. EPREX [Concomitant]
  4. ZOMETA [Suspect]
     Route: 042
     Dates: start: 20111209
  5. CARBOPLATIN [Suspect]
     Indication: LUNG ADENOCARCINOMA
     Dates: start: 20111209, end: 20111230
  6. ALIMTA [Suspect]
     Indication: LUNG ADENOCARCINOMA
     Dosage: 500 MG, UNK
     Route: 042
     Dates: start: 20111209
  7. METOPROLOL TARTRATE [Concomitant]
  8. OXYCONTIN [Concomitant]
  9. ASPIRIN [Concomitant]
  10. PANTOPRAZOLE [Concomitant]
  11. ATARAX [Concomitant]
  12. POLYETHYLENE GLYCOL [Concomitant]

REACTIONS (1)
  - OSTEONECROSIS [None]
